FAERS Safety Report 17904774 (Version 1)
Quarter: 2020Q2

REPORT INFORMATION
  Report Type: Spontaneous
  Country: US (occurrence: US)
  Receive Date: 20200617
  Receipt Date: 20200617
  Transmission Date: 20200714
  Serious: Yes (Hospitalization, Other)
  Sender: FDA-Public Use
  Company Number: US-ALLERGAN-1929732US

PATIENT
  Age: 70 Year
  Sex: Female

DRUGS (1)
  1. VIBERZI [Suspect]
     Active Substance: ELUXADOLINE
     Indication: IRRITABLE BOWEL SYNDROME
     Dosage: UNKNOWN, QOD, STARTED A COUPLE OF MONTHS PRIOR TO REPORTING
     Route: 048

REACTIONS (2)
  - Inappropriate schedule of product administration [Unknown]
  - Pancreatitis [Recovered/Resolved]
